FAERS Safety Report 24355730 (Version 1)
Quarter: 2024Q3

REPORT INFORMATION
  Report Type: Report from Study
  Country: US (occurrence: US)
  Receive Date: 20240924
  Receipt Date: 20240924
  Transmission Date: 20241016
  Serious: Yes (Death)
  Sender: ROCHE
  Company Number: US-ROCHE-10000086595

PATIENT

DRUGS (1)
  1. OCRELIZUMAB [Suspect]
     Active Substance: OCRELIZUMAB
     Indication: Primary progressive multiple sclerosis
     Route: 042

REACTIONS (7)
  - Fatigue [Unknown]
  - Upper respiratory tract infection [Unknown]
  - COVID-19 [Fatal]
  - Organising pneumonia [Fatal]
  - Soft tissue infection [Fatal]
  - Hypogammaglobulinaemia [Unknown]
  - Infection [Unknown]
